FAERS Safety Report 4342004-3 (Version None)
Quarter: 2004Q2

REPORT INFORMATION
  Report Type: 
  Country: None (occurrence: None)
  Receive Date: 20040415
  Receipt Date: 20040331
  Transmission Date: 20050107
  Serious: Yes (Other)
  Sender: FDA-Public Use
  Company Number: US_020382522

PATIENT
  Age: 75 Year
  Sex: Male

DRUGS (1)
  1. GEMCITABINE HYDROCHLORIDE - IV (GEMCITABINE) [Suspect]
     Indication: URETERIC CANCER METASTATIC
     Dosage: 1 G/M2 OTHER
     Route: 050

REACTIONS (6)
  - DYSPNOEA EXERTIONAL [None]
  - LUNG INFILTRATION [None]
  - OEDEMA PERIPHERAL [None]
  - OXYGEN SATURATION DECREASED [None]
  - PULMONARY TOXICITY [None]
  - THROMBOCYTOPENIA [None]
